FAERS Safety Report 5593045-X (Version None)
Quarter: 2008Q1

REPORT INFORMATION
  Report Type: 
  Country: None (occurrence: None)
  Receive Date: 20080116
  Receipt Date: 20080110
  Transmission Date: 20080703
  Serious: Yes (Other)
  Sender: FDA-Public Use
  Company Number: SE-JNJFOC-20070404222

PATIENT
  Age: 3 Decade
  Sex: Male

DRUGS (4)
  1. CONCERTA [Suspect]
     Indication: DRUG USE FOR UNKNOWN INDICATION
     Route: 048
  2. SERTRALIN [Concomitant]
  3. SERTRALIN [Concomitant]
  4. CISORDINOL [Concomitant]

REACTIONS (1)
  - CONVULSION [None]
